FAERS Safety Report 7147833-9 (Version None)
Quarter: 2010Q4

REPORT INFORMATION
  Report Type: 
  Country: None (occurrence: None)
  Receive Date: 20101206
  Receipt Date: 20101206
  Transmission Date: 20110411
  Serious: Yes (Disabling)
  Sender: FDA-Public Use
  Company Number: None

PATIENT
  Age: 41 Year
  Sex: Male
  Weight: 90.7194 kg

DRUGS (1)
  1. SEPTOCAINE WITH EPINEPHRINE 4% SEPTOCAINE 1/1000,000 EPI SEPTODONT [Suspect]
     Indication: DENTAL CARIES
     Dosage: 1.8 MG 1/2 LOCAL  INJECTION BG
     Dates: start: 20101122

REACTIONS (2)
  - HYPOAESTHESIA ORAL [None]
  - INJECTION SITE PAIN [None]
